FAERS Safety Report 17933422 (Version 1)
Quarter: 2020Q2

REPORT INFORMATION
  Report Type: Spontaneous
  Country: US (occurrence: US)
  Receive Date: 20200624
  Receipt Date: 20200624
  Transmission Date: 20200714
  Serious: Yes (Other)
  Sender: FDA-Public Use
  Company Number: US-TERSERA THERAPEUTICS LLC-2020TRS001662

PATIENT

DRUGS (3)
  1. LEVORPHANOL [Concomitant]
     Active Substance: LEVORPHANOL
     Indication: PRODUCT USED FOR UNKNOWN INDICATION
     Dosage: UNK
     Route: 065
  2. PRIALT [Suspect]
     Active Substance: ZICONOTIDE ACETATE
     Dosage: 5 MCG, QD
     Route: 037
  3. PRIALT [Suspect]
     Active Substance: ZICONOTIDE ACETATE
     Indication: SMALL FIBRE NEUROPATHY
     Dosage: UNK
     Route: 037
     Dates: start: 20190107

REACTIONS (1)
  - Papilloedema [Not Recovered/Not Resolved]
